FAERS Safety Report 4417658-3 (Version None)
Quarter: 2004Q2

REPORT INFORMATION
  Report Type: 
  Country: None (occurrence: None)
  Receive Date: 20040629
  Receipt Date: 20040301
  Transmission Date: 20050107
  Serious: Yes (Hospitalization)
  Sender: FDA-Public Use
  Company Number: USA040360483

PATIENT
  Age: 83 Year
  Sex: Female
  Weight: 73 kg

DRUGS (3)
  1. HUMALOG MIX 75/25 [Suspect]
     Dates: start: 20020101, end: 20040101
  2. HUMALOG [Suspect]
     Dates: start: 20040101
  3. LANTUS [Concomitant]

REACTIONS (2)
  - BLOOD GLUCOSE INCREASED [None]
  - ILIAC ARTERY THROMBOSIS [None]
